FAERS Safety Report 4981542-7 (Version None)
Quarter: 2006Q2

REPORT INFORMATION
  Report Type: 
  Country: None (occurrence: None)
  Receive Date: 20060419
  Receipt Date: 20060413
  Transmission Date: 20061013
  Serious: Yes (Life-Threatening, Hospitalization, Other)
  Sender: FDA-Public Use
  Company Number: US-2005-027960

PATIENT
  Age: 42 Year
  Sex: Male
  Weight: 71.7 kg

DRUGS (17)
  1. LEUKINE                 (GM-CSF (9874))          (SARGRAMOSTIM) [Suspect]
     Indication: CROHN'S DISEASE
     Dosage: 1.5 UG/KG, 1X/DAY, SUBCUTANEOUS
     Route: 058
     Dates: start: 20050311, end: 20050505
  2. ANTIBIOTICS [Concomitant]
  3. DEMEROL [Concomitant]
  4. VERSED [Concomitant]
  5. UNKNOWN BOWEL PREPARATION [Concomitant]
  6. PREDNISONE TAB [Concomitant]
  7. PERCOCET [Concomitant]
  8. CENTRUM SILVER (ZINC, RETINOL, TOCOPHERYL ACETATE, MINERALS NOS, VITAM [Concomitant]
  9. OSCAL [Concomitant]
  10. PRILOSEC [Concomitant]
  11. CIPROFLOXACIN [Concomitant]
  12. FLAGYL [Concomitant]
  13. AMOXICILLIN SODIUM W/CLAVULANATE POTASSIUM (AMOXICILLIN SODIUM, CLAVUL [Concomitant]
  14. CORTISONE ACETATE TAB [Concomitant]
  15. IMODIUM [Concomitant]
  16. FLAGYL [Concomitant]
  17. CIPRO [Concomitant]

REACTIONS (16)
  - ACUTE MYOCARDIAL INFARCTION [None]
  - ANAL FISTULA [None]
  - CORONARY ARTERY DISEASE [None]
  - CORONARY ARTERY STENOSIS [None]
  - DIARRHOEA [None]
  - DRUG DOSE OMISSION [None]
  - DYSPEPSIA [None]
  - INFLAMMATION [None]
  - INJECTION SITE PAIN [None]
  - INJECTION SITE REACTION [None]
  - MYOCARDIAL INFARCTION [None]
  - OSTEOPENIA [None]
  - PAIN IN EXTREMITY [None]
  - SCAR [None]
  - THROMBOSIS IN DEVICE [None]
  - VENTRICULAR FIBRILLATION [None]
